FAERS Safety Report 16072737 (Version 1)
Quarter: 2019Q1

REPORT INFORMATION
  Report Type: Spontaneous
  Country: US (occurrence: US)
  Receive Date: 20190314
  Receipt Date: 20190314
  Transmission Date: 20190418
  Serious: Yes (Hospitalization, Other)
  Sender: FDA-Public Use
  Company Number: US-ELI_LILLY_AND_COMPANY-US201903001551

PATIENT
  Sex: Female

DRUGS (2)
  1. HUMALOG [Suspect]
     Active Substance: INSULIN LISPRO
     Indication: TYPE 1 DIABETES MELLITUS
     Dosage: 8-12 IU, PRN WITH EACH MEAL
     Route: 065
  2. HUMALOG [Suspect]
     Active Substance: INSULIN LISPRO
     Dosage: 8-12 IU, PRN WITH EACH MEAL
     Route: 065

REACTIONS (7)
  - Scar [Unknown]
  - Injection site pain [Unknown]
  - Multiple sclerosis [Unknown]
  - Contusion [Unknown]
  - Road traffic accident [Unknown]
  - Tremor [Unknown]
  - Injection site haemorrhage [Unknown]

NARRATIVE: CASE EVENT DATE: 2007
